FAERS Safety Report 9292989 (Version 1)
Quarter: 2013Q2

REPORT INFORMATION
  Report Type: Spontaneous
  Country: US (occurrence: US)
  Receive Date: 20130516
  Receipt Date: 20130516
  Transmission Date: 20140414
  Serious: Yes (Hospitalization)
  Sender: FDA-Public Use
  Company Number: US-PFIZER INC-2013146234

PATIENT
  Age: 29 Year
  Sex: Female

DRUGS (14)
  1. VANCOMYCIN HCL [Suspect]
     Indication: CELLULITIS
     Dosage: 5 G, UNK
     Dates: start: 20130405, end: 20130412
  2. VANCOMYCIN HCL [Suspect]
     Dosage: 10 G, UNK
     Dates: start: 20130405, end: 20130412
  3. TAMOXIFEN [Concomitant]
     Dosage: UNK
  4. TYLENOL [Concomitant]
     Dosage: UNK, AS NEEDED
  5. DIPHENHYDRAMINE [Concomitant]
     Dosage: UNK, AS NEEDED
  6. NICOTINE [Concomitant]
     Dosage: UNK
  7. OMEPRAZOLE [Concomitant]
     Dosage: UNK
  8. HYDROMORPHONE [Concomitant]
     Dosage: UNK, AS NEEDED
  9. KETOROLAC [Concomitant]
     Dosage: UNK, EVERY SIX HOURS
  10. ZOFRAN [Concomitant]
     Dosage: UNK, AS NEEDED
  11. BISACODYL [Concomitant]
     Dosage: UNK, AS NEEDED
  12. PROMETHAZINE [Concomitant]
     Dosage: UNK, AS NEEDED
  13. ZOSYN [Concomitant]
     Dosage: 2.275 MG, UNK
  14. TEMAZEPAM [Concomitant]
     Dosage: UNK

REACTIONS (1)
  - Antibiotic level above therapeutic [Unknown]
